FAERS Safety Report 4942160-X (Version None)
Quarter: 2006Q1

REPORT INFORMATION
  Report Type: 
  Country: None (occurrence: None)
  Receive Date: 20060313
  Receipt Date: 20050806
  Transmission Date: 20060701
  Serious: No
  Sender: FDA-Public Use
  Company Number: US-GLAXOSMITHKLINE-A0569321A

PATIENT
  Sex: Female

DRUGS (1)
  1. NICORETTE [Suspect]
     Dosage: 2MG TWICE PER DAY
     Route: 002

REACTIONS (2)
  - HAEMOGLOBIN DECREASED [None]
  - IMPAIRED HEALING [None]
